FAERS Safety Report 8306166-5 (Version None)
Quarter: 2012Q2

REPORT INFORMATION
  Report Type: 
  Country: None (occurrence: None)
  Receive Date: 20120423
  Receipt Date: 20120418
  Transmission Date: 20120825
  Serious: Yes (Hospitalization)
  Sender: FDA-Public Use
  Company Number: IT-ABBOTT-12P-083-0904114-00

PATIENT
  Sex: Male

DRUGS (7)
  1. LANSOPRAZOLO [Concomitant]
     Indication: ANKYLOSING SPONDYLITIS
     Route: 048
     Dates: start: 20050101
  2. INDOMETHACIN [Concomitant]
     Indication: ANKYLOSING SPONDYLITIS
     Route: 048
     Dates: start: 20050101
  3. COLCHICINA LIRCA [Concomitant]
     Indication: PAIN
     Route: 048
     Dates: start: 20110101
  4. MEDROL [Suspect]
     Indication: ANKYLOSING SPONDYLITIS
     Route: 048
  5. HUMIRA [Suspect]
     Indication: ANKYLOSING SPONDYLITIS
     Route: 058
     Dates: start: 20080731, end: 20111220
  6. ALLOPURINOL [Concomitant]
     Indication: HYPERURICAEMIA
     Route: 048
     Dates: start: 20050101
  7. MEDROL [Concomitant]
     Route: 048
     Dates: start: 20050101

REACTIONS (4)
  - FASCIITIS [None]
  - PAIN IN EXTREMITY [None]
  - OEDEMA PERIPHERAL [None]
  - BLOOD CULTURE POSITIVE [None]
